FAERS Safety Report 6262686-9 (Version None)
Quarter: 2009Q3

REPORT INFORMATION
  Report Type: 
  Country: None (occurrence: None)
  Receive Date: 20090709
  Receipt Date: 20090707
  Transmission Date: 20100115
  Serious: Yes (Other)
  Sender: FDA-Public Use
  Company Number: SE-ABBOTT-09P-150-0583996-00

PATIENT
  Sex: Female

DRUGS (2)
  1. REDUCTIL 15MG [Suspect]
     Indication: DRUG USE FOR UNKNOWN INDICATION
  2. FLUOXETINE [Suspect]
     Indication: DRUG USE FOR UNKNOWN INDICATION

REACTIONS (4)
  - CARDIAC ARREST [None]
  - ELECTROCARDIOGRAM QT PROLONGED [None]
  - HYPOKALAEMIA [None]
  - VENTRICULAR TACHYCARDIA [None]
